FAERS Safety Report 7724053-8 (Version None)
Quarter: 2011Q3

REPORT INFORMATION
  Report Type: 
  Country: None (occurrence: None)
  Receive Date: 20110829
  Receipt Date: 20110819
  Transmission Date: 20111222
  Serious: Yes (Hospitalization)
  Sender: FDA-Public Use
  Company Number: JPI-P-016716

PATIENT
  Age: 27 Year
  Sex: Female
  Weight: 66 kg

DRUGS (9)
  1. CETIRIZINE HCL [Concomitant]
  2. MODAFINIL [Concomitant]
  3. MONTELUKAST SODIUM [Concomitant]
  4. XYREM [Suspect]
     Indication: SOMNOLENCE
     Dosage: 4.6 (2.25 GM, 2 IN 1 D), ORAL; 9 GM (4.5 GM, 2 IN 1 D), ORAL
     Route: 048
     Dates: start: 20110501
  5. XYREM [Suspect]
     Indication: NARCOLEPSY
     Dosage: 4.6 (2.25 GM, 2 IN 1 D), ORAL; 9 GM (4.5 GM, 2 IN 1 D), ORAL
     Route: 048
     Dates: start: 20110501
  6. XYREM [Suspect]
     Indication: SOMNOLENCE
     Dosage: 4.6 (2.25 GM, 2 IN 1 D), ORAL; 9 GM (4.5 GM, 2 IN 1 D), ORAL
     Route: 048
     Dates: start: 20110101, end: 20110817
  7. XYREM [Suspect]
     Indication: NARCOLEPSY
     Dosage: 4.6 (2.25 GM, 2 IN 1 D), ORAL; 9 GM (4.5 GM, 2 IN 1 D), ORAL
     Route: 048
     Dates: start: 20110101, end: 20110817
  8. DROSPIRENONE AND ETHINYL ESTRADIOL [Concomitant]
  9. MOMETASONE FUROATE [Concomitant]

REACTIONS (2)
  - PULMONARY EMBOLISM [None]
  - DEEP VEIN THROMBOSIS [None]
